FAERS Safety Report 15394656 (Version 1)
Quarter: 2018Q4

REPORT INFORMATION
  Report Type: Spontaneous
  Country: ES (occurrence: ES)
  Receive Date: 20180918
  Receipt Date: 20180918
  Transmission Date: 20190204
  Serious: Yes (Other)
  Sender: FDA-Public Use
  Company Number: ES-VELOXIS PHARMACEUTICALS, INC.-2018VELES1172

PATIENT
  Age: 46 Year
  Sex: Male

DRUGS (2)
  1. JUGO DE ALOE VERA [Interacting]
     Active Substance: ALOE VERA LEAF
     Indication: PRODUCT USED FOR UNKNOWN INDICATION
     Dosage: UNK
     Dates: start: 201807, end: 201808
  2. ENVARSUS XR [Suspect]
     Active Substance: TACROLIMUS
     Indication: PRODUCT USED FOR UNKNOWN INDICATION
     Dosage: UNK
     Route: 065
     Dates: start: 2018

REACTIONS (2)
  - Food interaction [Recovered/Resolved]
  - Immunosuppressant drug level decreased [Recovered/Resolved]

NARRATIVE: CASE EVENT DATE: 201807
